FAERS Safety Report 21437264 (Version 2)
Quarter: 2022Q4

REPORT INFORMATION
  Report Type: Spontaneous
  Country: CN (occurrence: CN)
  Receive Date: 20221010
  Receipt Date: 20221014
  Transmission Date: 20230112
  Serious: Yes (Hospitalization, Other)
  Sender: FDA-Public Use
  Company Number: CN-009507513-2209CHN011241

PATIENT
  Age: 74 Year
  Sex: Female
  Weight: 55 kg

DRUGS (2)
  1. CANCIDAS [Suspect]
     Active Substance: CASPOFUNGIN ACETATE
     Indication: Fungal infection
     Dosage: 50 MILLIGRAM, QD; FORMULATION: POWDER FOR INJECTION
     Route: 041
     Dates: start: 20220915, end: 20220919
  2. SODIUM CHLORIDE [Concomitant]
     Active Substance: SODIUM CHLORIDE
     Indication: Antifungal treatment
     Dosage: 250 MILLILITER, ONCE A DAY
     Route: 041
     Dates: start: 20220915, end: 20220919

REACTIONS (3)
  - Hallucination, auditory [Recovering/Resolving]
  - Hallucination [Recovering/Resolving]
  - Restlessness [Recovering/Resolving]

NARRATIVE: CASE EVENT DATE: 20220917
